FAERS Safety Report 11293204 (Version 3)
Quarter: 2015Q3

REPORT INFORMATION
  Report Type: Spontaneous
  Country: US (occurrence: US)
  Receive Date: 20150722
  Receipt Date: 20150910
  Transmission Date: 20151125
  Serious: Yes (Hospitalization, Other)
  Sender: FDA-Public Use
  Company Number: US-PFIZER INC-2015240986

PATIENT
  Age: 81 Year
  Sex: Female

DRUGS (8)
  1. LYRICA [Suspect]
     Active Substance: PREGABALIN
     Indication: OSTEOARTHRITIS
  2. THYROID [Concomitant]
     Active Substance: LEVOTHYROXINE\LIOTHYRONINE
     Dosage: 100 ?G, 1X/DAY
  3. LYRICA [Suspect]
     Active Substance: PREGABALIN
     Indication: PAIN
  4. ALPRAZOLAM. [Concomitant]
     Active Substance: ALPRAZOLAM
     Indication: SLEEP DISORDER
     Dosage: 5 MG, 1X/DAY- AT NIGHT
  5. LYRICA [Suspect]
     Active Substance: PREGABALIN
     Indication: FIBROMYALGIA
     Dosage: UNK
     Dates: end: 2013
  6. MIRALAX [Concomitant]
     Active Substance: POLYETHYLENE GLYCOL 3350
     Dosage: 1 DF, ALTERNATE DAY
  7. ALBUTEROL SULFATE. [Concomitant]
     Active Substance: ALBUTEROL SULFATE
     Indication: LUNG DISORDER
     Dosage: UNK, EVERY 4-6 HOURS AS NEEDED
  8. CARDIZEM [Concomitant]
     Active Substance: DILTIAZEM HYDROCHLORIDE
     Indication: CARDIAC DISORDER
     Dosage: 180 MG, 1X/DAY

REACTIONS (14)
  - Pneumonia [Unknown]
  - Pain [Unknown]
  - Diplopia [Unknown]
  - Exercise tolerance decreased [Unknown]
  - Dysstasia [Unknown]
  - Impaired driving ability [Unknown]
  - Joint injury [Not Recovered/Not Resolved]
  - Gait disturbance [Unknown]
  - Back pain [Not Recovered/Not Resolved]
  - Upper limb fracture [Not Recovered/Not Resolved]
  - Weight increased [Unknown]
  - Disease recurrence [Unknown]
  - Asthenia [Unknown]
  - Fall [Not Recovered/Not Resolved]

NARRATIVE: CASE EVENT DATE: 201407
